FAERS Safety Report 8557452-5 (Version None)
Quarter: 2012Q3

REPORT INFORMATION
  Report Type: 
  Country: None (occurrence: None)
  Receive Date: 20120725
  Receipt Date: 20120725
  Transmission Date: 20120928
  Serious: No
  Sender: FDA-Public Use
  Company Number: None

PATIENT
  Sex: Female
  Weight: 68.9467 kg

DRUGS (2)
  1. MEGESTROL ACETATE [Suspect]
     Indication: HYPERTENSION
     Dates: start: 20120606, end: 20120723
  2. HYDRALAZINE HCL [Suspect]

REACTIONS (3)
  - WRONG DRUG ADMINISTERED [None]
  - DRUG DISPENSING ERROR [None]
  - CIRCUMSTANCE OR INFORMATION CAPABLE OF LEADING TO MEDICATION ERROR [None]
